FAERS Safety Report 16969928 (Version 2)
Quarter: 2019Q4

REPORT INFORMATION
  Report Type: Spontaneous
  Country: US (occurrence: US)
  Receive Date: 20191029
  Receipt Date: 20191105
  Transmission Date: 20200122
  Serious: Yes (Other)
  Sender: FDA-Public Use
  Company Number: US-PFIZER INC-2019463730

PATIENT
  Age: 32 Year
  Sex: Male

DRUGS (4)
  1. MANNITOL. [Suspect]
     Active Substance: MANNITOL
     Indication: INTRACRANIAL PRESSURE INCREASED
     Dosage: UNK
  2. SODIUM CHLORIDE. [Suspect]
     Active Substance: SODIUM CHLORIDE
     Indication: INTRACRANIAL PRESSURE INCREASED
     Dosage: UNK
  3. MANNITOL. [Suspect]
     Active Substance: MANNITOL
     Indication: SUBARACHNOID HAEMORRHAGE
  4. SODIUM CHLORIDE. [Suspect]
     Active Substance: SODIUM CHLORIDE
     Indication: SUBARACHNOID HAEMORRHAGE

REACTIONS (3)
  - Polyuria [Unknown]
  - Hypokalaemia [Unknown]
  - Hypophosphataemia [Unknown]
